FAERS Safety Report 5767710-5 (Version None)
Quarter: 2008Q2

REPORT INFORMATION
  Report Type: 
  Country: None (occurrence: None)
  Receive Date: 20080609
  Receipt Date: 20080528
  Transmission Date: 20081010
  Serious: Yes (Hospitalization)
  Sender: FDA-Public Use
  Company Number: SPV1-2008-01203

PATIENT
  Age: 14 Year
  Sex: Male

DRUGS (1)
  1. ELAPRASE [Suspect]
     Indication: MUCOPOLYSACCHARIDOSIS II
     Dosage: 0.5 MG/KG, 1X/2WKS, IV DRIP
     Route: 042
     Dates: start: 20061106

REACTIONS (2)
  - PNEUMONIA [None]
  - UPPER RESPIRATORY TRACT INFECTION [None]
